FAERS Safety Report 15106043 (Version 2)
Quarter: 2018Q4

REPORT INFORMATION
  Report Type: Spontaneous
  Country: US (occurrence: US)
  Receive Date: 20180704
  Receipt Date: 20181017
  Transmission Date: 20190204
  Serious: No
  Sender: FDA-Public Use
  Company Number: US-SHIRE-US201823448

PATIENT
  Age: 54 Year
  Sex: Female

DRUGS (1)
  1. GATTEX [Suspect]
     Active Substance: TEDUGLUTIDE\WATER
     Indication: SHORT-BOWEL SYNDROME
     Dosage: 0.198 UNK, UNK
     Route: 065
     Dates: start: 20180419

REACTIONS (7)
  - Asthenia [Unknown]
  - Fluid retention [Unknown]
  - Treatment noncompliance [Unknown]
  - Abdominal distension [Recovered/Resolved]
  - Nausea [Recovered/Resolved]
  - Fatigue [Unknown]
  - Malaise [Unknown]

NARRATIVE: CASE EVENT DATE: 20180416
